FAERS Safety Report 12242462 (Version 7)
Quarter: 2017Q1

REPORT INFORMATION
  Report Type: Spontaneous
  Country: US (occurrence: US)
  Receive Date: 20160406
  Receipt Date: 20170130
  Transmission Date: 20170428
  Serious: Yes (Congenital Anomaly, Other)
  Sender: FDA-Public Use
  Company Number: PHEH2016US008167

PATIENT
  Sex: Male

DRUGS (2)
  1. ZOFRAN [Suspect]
     Active Substance: ONDANSETRON HYDROCHLORIDE
     Indication: FOETAL EXPOSURE DURING PREGNANCY
     Dosage: MOTHER DOSE: 08 MG, TID
     Route: 064
  2. ZOFRAN [Suspect]
     Active Substance: ONDANSETRON HYDROCHLORIDE
     Indication: FOETAL EXPOSURE DURING PREGNANCY
     Dosage: MOTHER^S DOSE: 8 MG, PRN
     Route: 064

REACTIONS (29)
  - Sinus tachycardia [Unknown]
  - Streptococcal infection [Unknown]
  - Pain [Unknown]
  - Ear pain [Unknown]
  - Otitis media acute [Unknown]
  - Anxiety [Unknown]
  - Heart disease congenital [Unknown]
  - Congenital aortic valve incompetence [Unknown]
  - Hydrocele [Unknown]
  - Inguinal hernia [Unknown]
  - Viral infection [Unknown]
  - Injury [Unknown]
  - Oropharyngeal pain [Unknown]
  - Congenital aortic dilatation [Unknown]
  - Tonsillitis streptococcal [Unknown]
  - Left ventricular hypertrophy [Unknown]
  - Acute sinusitis [Unknown]
  - Cardiomegaly [Unknown]
  - Cardiac murmur [Unknown]
  - Anhedonia [Unknown]
  - Congenital anomaly [Unknown]
  - Atrial septal defect [Unknown]
  - Skin papilloma [Unknown]
  - Congenital aortic stenosis [Not Recovered/Not Resolved]
  - Foetal exposure during pregnancy [Unknown]
  - Emotional distress [Unknown]
  - Bicuspid aortic valve [Unknown]
  - Pharyngotonsillitis [Unknown]
  - Otitis externa [Unknown]
